FAERS Safety Report 21555471 (Version 6)
Quarter: 2023Q2

REPORT INFORMATION
  Report Type: Report from Study
  Country: CA (occurrence: CA)
  Receive Date: 20221104
  Receipt Date: 20230516
  Transmission Date: 20230722
  Serious: Yes (Hospitalization)
  Sender: FDA-Public Use
  Company Number: CA-MYLANLABS-2022M1051131

PATIENT
  Sex: Female
  Weight: 68.03 kg

DRUGS (2)
  1. HULIO [Suspect]
     Active Substance: ADALIMUMAB-FKJP
     Indication: Cardiac sarcoidosis
     Dosage: 80 MILLIGRAM, Q2W (EVERY OTHER WEEK) (1 2X A WEEK)
     Route: 058
     Dates: start: 20221017
  2. HULIO [Suspect]
     Active Substance: ADALIMUMAB-FKJP
     Dosage: 40 MILLIGRAM, BIWEEKLY
     Route: 058
     Dates: start: 20221017, end: 20230420

REACTIONS (6)
  - Cardiac sarcoidosis [Unknown]
  - Asthenia [Unknown]
  - Myalgia [Unknown]
  - Tinnitus [Unknown]
  - Off label use [Unknown]
  - Inappropriate schedule of product administration [Unknown]
